FAERS Safety Report 20055335 (Version 1)
Quarter: 2021Q4

REPORT INFORMATION
  Report Type: Spontaneous
  Country: US (occurrence: US)
  Receive Date: 20211110
  Receipt Date: 20211110
  Transmission Date: 20220303
  Serious: Yes (Death, Other)
  Sender: FDA-Public Use
  Company Number: US-SAGENT PHARMACEUTICALS-2021SAG002481

PATIENT

DRUGS (2)
  1. LEVETIRACETAM [Suspect]
     Active Substance: LEVETIRACETAM
     Indication: Foetal exposure timing unspecified
     Dosage: UNK
     Route: 064
  2. LACOSAMIDE [Suspect]
     Active Substance: LACOSAMIDE
     Indication: Foetal exposure timing unspecified
     Dosage: UNK
     Route: 064

REACTIONS (3)
  - Sudden infant death syndrome [Fatal]
  - Foetal exposure during pregnancy [Unknown]
  - Premature baby [Unknown]
